FAERS Safety Report 4301391-2 (Version None)
Quarter: 2004Q1

REPORT INFORMATION
  Report Type: 
  Country: None (occurrence: None)
  Receive Date: 20040223
  Receipt Date: 20031010
  Transmission Date: 20041129
  Serious: Yes (Other)
  Sender: FDA-Public Use
  Company Number: US-GLAXOSMITHKLINE-A0430069A

PATIENT
  Age: 78 Year
  Sex: Female
  Weight: 63.6 kg

DRUGS (7)
  1. NAVELBINE [Suspect]
     Indication: BREAST CANCER
     Dosage: 30MG WEEKLY
     Route: 042
     Dates: start: 20030815, end: 20030829
  2. KYTRIL [Concomitant]
     Dosage: 1MG AS DIRECTED
     Route: 042
     Dates: start: 20030815
  3. PROCRIT [Concomitant]
  4. NEUPOGEN [Concomitant]
  5. LASIX [Concomitant]
  6. DURAGESIC [Concomitant]
     Route: 062
  7. SYNTHROID [Concomitant]

REACTIONS (2)
  - NAUSEA [None]
  - VOMITING [None]
